FAERS Safety Report 9122584 (Version 1)
Quarter: 2013Q1

REPORT INFORMATION
  Report Type: Spontaneous
  Country: US (occurrence: None)
  Receive Date: 20130130
  Receipt Date: 20130130
  Transmission Date: 20140127
  Serious: Yes (Death)
  Sender: FDA-Public Use
  Company Number: B0859028A

PATIENT
  Age: 30 Year
  Sex: Male

DRUGS (4)
  1. MORPHINE [Suspect]
  2. DIAZEPAM (FORMULATION UNKNOWN) (GENERIC) (DIAZEPAM) [Suspect]
  3. PAROXETINE HYDROCHLORIDE (FORMULATION UNKNOWN) (GENERIC) (PAROXETINE HYDROCHLORIDE) [Suspect]
  4. ALPRAZOLAM [Suspect]

REACTIONS (1)
  - Intentional drug misuse [None]
